FAERS Safety Report 15646284 (Version 1)
Quarter: 2018Q4

REPORT INFORMATION
  Report Type: Spontaneous
  Country: GR (occurrence: GR)
  Receive Date: 20181122
  Receipt Date: 20181122
  Transmission Date: 20190205
  Serious: Yes (Hospitalization, Other)
  Sender: FDA-Public Use
  Company Number: GR-ACCORD-093458

PATIENT
  Age: 50 Year
  Sex: Male

DRUGS (1)
  1. TEMOZOLOMIDE. [Suspect]
     Active Substance: TEMOZOLOMIDE
     Indication: GLIOBLASTOMA
     Dosage: FROM 5 YEARS

REACTIONS (2)
  - Acute respiratory failure [Recovering/Resolving]
  - Pneumocystis jirovecii pneumonia [Recovering/Resolving]
